FAERS Safety Report 16361901 (Version 2)
Quarter: 2019Q3

REPORT INFORMATION
  Report Type: Report from Study
  Country: US (occurrence: US)
  Receive Date: 20190528
  Receipt Date: 20190715
  Transmission Date: 20191004
  Serious: Yes (Hospitalization)
  Sender: FDA-Public Use
  Company Number: US-PFIZER INC-2019219164

PATIENT
  Age: 71 Year
  Sex: Female
  Weight: 82.9 kg

DRUGS (7)
  1. PREDNISONE. [Suspect]
     Active Substance: PREDNISONE
     Indication: GRAFT VERSUS HOST DISEASE
     Dosage: 120 MG
     Route: 065
     Dates: start: 20180714, end: 20180716
  2. BLINDED THERAPY [Suspect]
     Active Substance: INVESTIGATIONAL PRODUCT
     Indication: GRAFT VERSUS HOST DISEASE
     Dosage: UNK
     Dates: start: 20180629, end: 20180708
  3. METHYLPREDNISOLONE. [Suspect]
     Active Substance: METHYLPREDNISOLONE
     Dosage: 104 MG, UNK
     Dates: start: 20180713
  4. FLOMAX [MORNIFLUMATE] [Suspect]
     Active Substance: MORNIFLUMATE
     Dosage: UNK
     Dates: start: 20180626, end: 20180712
  5. METHYLPREDNISOLONE. [Suspect]
     Active Substance: METHYLPREDNISOLONE
     Indication: GRAFT VERSUS HOST DISEASE
     Dosage: 92 MG, UNK
     Dates: start: 20180712, end: 20180712
  6. PREDNISONE. [Suspect]
     Active Substance: PREDNISONE
     Dosage: 100 MG
     Route: 065
     Dates: start: 20180717
  7. BLINDED THERAPY [Suspect]
     Active Substance: INVESTIGATIONAL PRODUCT
     Dosage: UNK
     Dates: start: 20180708, end: 20180712

REACTIONS (2)
  - Syncope [Recovered/Resolved]
  - Dizziness [Recovered/Resolved]

NARRATIVE: CASE EVENT DATE: 20180713
